FAERS Safety Report 5786568-1 (Version None)
Quarter: 2008Q2

REPORT INFORMATION
  Report Type: 
  Country: None (occurrence: None)
  Receive Date: 20080624
  Receipt Date: 20070813
  Transmission Date: 20081010
  Serious: No
  Sender: FDA-Public Use
  Company Number: US-ASTRAZENECA-2007UW19557

PATIENT
  Age: 54 Year
  Sex: Female
  Weight: 111.1 kg

DRUGS (6)
  1. PULMICORT-100 [Suspect]
     Indication: ASTHMA
     Route: 055
     Dates: start: 20070803
  2. BENICAR [Concomitant]
  3. FLORADIL [Concomitant]
  4. UNIFIL [Concomitant]
  5. ALBUTEROL [Concomitant]
  6. PULMICORT [Concomitant]
     Route: 055
     Dates: start: 20061201, end: 20070801

REACTIONS (1)
  - NASAL DISCOMFORT [None]
